FAERS Safety Report 20541998 (Version 1)
Quarter: 2022Q1

REPORT INFORMATION
  Report Type: Spontaneous
  Country: US (occurrence: US)
  Receive Date: 20220302
  Receipt Date: 20220302
  Transmission Date: 20220423
  Serious: Yes (Other)
  Sender: FDA-Public Use
  Company Number: US-JNJFOC-20211200596

PATIENT
  Sex: Female

DRUGS (1)
  1. IMODIUM MULTI-SYMPTOM RELIEF [Suspect]
     Active Substance: DIMETHICONE\LOPERAMIDE HYDROCHLORIDE
     Indication: Diarrhoea
     Dosage: COUPLE PILLS. JUST WHEN NEEDED. WHEN I TRAVEL
     Route: 048

REACTIONS (5)
  - Choking [Unknown]
  - Foreign body in throat [Unknown]
  - Product size issue [Unknown]
  - Product packaging issue [Unknown]
  - Product quality issue [Unknown]
